FAERS Safety Report 14561498 (Version 1)
Quarter: 2018Q1

REPORT INFORMATION
  Report Type: Spontaneous
  Country: US (occurrence: US)
  Receive Date: 20180222
  Receipt Date: 20180222
  Transmission Date: 20180509
  Serious: No
  Sender: FDA-Public Use
  Company Number: US-PFIZER INC-2018029849

PATIENT
  Age: 8 Year
  Sex: Female
  Weight: 16 kg

DRUGS (2)
  1. GENOTROPIN [Suspect]
     Active Substance: SOMATROPIN
     Indication: GROWTH HORMONE DEFICIENCY
     Dosage: 0.9 MG, UNK (0.9 MG/DAY 6 DAYS/ WK) (MON THRU SAT, FOR 90 DAY(S)), (0.35 MG/KG/WK)
     Route: 058
  2. GENOTROPIN [Suspect]
     Active Substance: SOMATROPIN
     Indication: SMALL FOR DATES BABY

REACTIONS (2)
  - Drug effect incomplete [Unknown]
  - Drug dose omission [Unknown]
